FAERS Safety Report 4324857-8 (Version None)
Quarter: 2004Q1

REPORT INFORMATION
  Report Type: 
  Country: None (occurrence: None)
  Receive Date: 20040322
  Receipt Date: 20040305
  Transmission Date: 20041129
  Serious: Yes (Life-Threatening, Hospitalization)
  Sender: FDA-Public Use
  Company Number: 235727

PATIENT
  Age: 59 Year
  Sex: Female
  Weight: 45 kg

DRUGS (4)
  1. HUMULIN R PEN [Suspect]
     Indication: DIABETES MELLITUS INSULIN-DEPENDENT
     Dosage: 11-25 IU, SUBCUTANEOUS
     Route: 058
     Dates: start: 19990201
  2. HUMULIN N [Suspect]
     Indication: DIABETES MELLITUS INSULIN-DEPENDENT
     Dosage: 6-2 IU, SUBCUTANEOUS
     Route: 058
     Dates: start: 19990201
  3. AMOBAN (ZOPICLONE) [Concomitant]
  4. PURSENNID (SENNA LEAF) [Concomitant]

REACTIONS (4)
  - BRAIN OEDEMA [None]
  - EXCESSIVE EXERCISE [None]
  - HYPOGLYCAEMIC COMA [None]
  - MENINGITIS [None]
